FAERS Safety Report 17781885 (Version 5)
Quarter: 2020Q2

REPORT INFORMATION
  Report Type: Spontaneous
  Country: FR (occurrence: FR)
  Receive Date: 20200514
  Receipt Date: 20200522
  Transmission Date: 20200714
  Serious: Yes (Life-Threatening, Hospitalization, Other)
  Sender: FDA-Public Use
  Company Number: FR-PFIZER INC-2020188043

PATIENT
  Age: 76 Year
  Sex: Male

DRUGS (3)
  1. OXALIPLATIN. [Suspect]
     Active Substance: OXALIPLATIN
     Indication: COLON CANCER METASTATIC
     Dosage: UNK, CYCLIC, (4 CYCLIC)
  2. FLUOROURACIL. [Concomitant]
     Active Substance: FLUOROURACIL
     Indication: COLON CANCER METASTATIC
     Dosage: UNK, CYCLIC, ( 4 CYCLIC)
  3. SOLU-MEDROL [Concomitant]
     Active Substance: METHYLPREDNISOLONE SODIUM SUCCINATE
     Indication: COLON CANCER METASTATIC
     Dosage: UNK, CYCLIC, (4 CYCLIC)

REACTIONS (4)
  - Haemoglobinuria [Unknown]
  - Renal tubular injury [Unknown]
  - Intravascular haemolysis [Unknown]
  - Haemolytic anaemia [Unknown]
